FAERS Safety Report 8241224-5 (Version None)
Quarter: 2012Q1

REPORT INFORMATION
  Report Type: 
  Country: None (occurrence: None)
  Receive Date: 20120328
  Receipt Date: 20120322
  Transmission Date: 20120608
  Serious: No
  Sender: FDA-Public Use
  Company Number: US-BAYER-2012-029532

PATIENT
  Age: 73 Year
  Sex: Female
  Weight: 89.796 kg

DRUGS (10)
  1. LOVAZA [Concomitant]
  2. CO Q10 [Concomitant]
  3. ASPIRIN [Concomitant]
     Indication: ISCHAEMIC HEART DISEASE PROPHYLAXIS
     Dosage: 81 MG (2 TABS ONCE DAILY)
     Route: 048
     Dates: start: 20110301
  4. ALEVE (CAPLET) [Suspect]
     Indication: PRODUCT USED FOR UNKNOWN INDICATION
     Dosage: 1 TAB USED ONLY ONE TIME
     Route: 048
     Dates: start: 20120320, end: 20120320
  5. ASCORBIC ACID [Concomitant]
  6. VITAMIN B COMPLEX CAP [Concomitant]
  7. VITAMIN D [Concomitant]
  8. EVOXAC [Concomitant]
  9. SYNTHROID [Concomitant]
  10. LIPITOR [Concomitant]

REACTIONS (1)
  - NO ADVERSE EVENT [None]
